FAERS Safety Report 5229167-2 (Version None)
Quarter: 2007Q1

REPORT INFORMATION
  Report Type: 
  Country: None (occurrence: None)
  Receive Date: 20061201
  Receipt Date: 20060922
  Transmission Date: 20070707
  Serious: No
  Sender: FDA-Public Use
  Company Number: US200609005905

PATIENT
  Age: 24 Year
  Sex: Female

DRUGS (3)
  1. CYMBALTA [Suspect]
     Indication: DEPRESSION
     Dates: start: 20060101, end: 20060101
  2. LEXAPRO /USA/ (ESCITALOPRAM) [Concomitant]
  3. WELLBUTRIN [Concomitant]

REACTIONS (3)
  - CONSTIPATION [None]
  - FEELING ABNORMAL [None]
  - INTESTINAL FUNCTIONAL DISORDER [None]
